FAERS Safety Report 4320605-6 (Version None)
Quarter: 2004Q1

REPORT INFORMATION
  Report Type: 
  Country: None (occurrence: None)
  Receive Date: 20040311
  Receipt Date: 20040301
  Transmission Date: 20041129
  Serious: Yes (Other)
  Sender: FDA-Public Use
  Company Number: 200410037BBE

PATIENT
  Age: 24 Month
  Sex: Female

DRUGS (2)
  1. IMMUNE GLOBULIN (HUMAN) [Suspect]
     Dosage: QW, INTRAVENOUS
     Route: 042
  2. CORTICOSTEROIDS [Concomitant]

REACTIONS (1)
  - BLOOD PRESSURE SYSTOLIC INCREASED [None]
